FAERS Safety Report 5414863-4 (Version None)
Quarter: 2007Q3

REPORT INFORMATION
  Report Type: 
  Country: None (occurrence: None)
  Receive Date: 20070815
  Receipt Date: 20070808
  Transmission Date: 20080115
  Serious: Yes (Hospitalization, Other)
  Sender: FDA-Public Use
  Company Number: PHBS2007JP13248

PATIENT
  Age: 74 Year
  Sex: Female

DRUGS (5)
  1. DIOVAN [Suspect]
     Indication: HYPERTENSION
     Dosage: 40 MG, UNK
     Route: 048
     Dates: start: 20070201
  2. LASIX [Suspect]
     Dosage: 20 MG, UNK
     Route: 048
     Dates: start: 20070201
  3. MARZULENE [Suspect]
     Dosage: 6 G, UNK
     Route: 048
     Dates: start: 20070201
  4. ALLOPURINOL [Suspect]
     Dosage: 100 MG, UNK
     Route: 048
     Dates: start: 20070201
  5. LENDORMIN [Suspect]
     Dosage: 1.5 DF, UNK
     Route: 048
     Dates: start: 20070201

REACTIONS (1)
  - STEVENS-JOHNSON SYNDROME [None]
